FAERS Safety Report 4433293-5 (Version None)
Quarter: 2004Q3

REPORT INFORMATION
  Report Type: 
  Country: None (occurrence: None)
  Receive Date: 20040826
  Receipt Date: 20040616
  Transmission Date: 20050211
  Serious: Yes (Other)
  Sender: FDA-Public Use
  Company Number: BE-JNJFOC-20040604397

PATIENT
  Sex: Female
  Weight: 50 kg

DRUGS (7)
  1. BLINDED; GALANTAMINE [Suspect]
     Route: 049
     Dates: start: 20040519, end: 20040616
  2. BLINDED; GALANTAMINE [Suspect]
     Route: 049
     Dates: start: 20040519, end: 20040616
  3. PLACEBO [Suspect]
     Route: 049
     Dates: start: 20040519, end: 20040616
  4. RISPERIDONE [Suspect]
     Route: 049
  5. ASAFLOW [Concomitant]
     Route: 049
  6. GERATAM [Concomitant]
     Indication: MEMORY IMPAIRMENT
     Route: 049
  7. ACTONEL [Concomitant]
     Indication: OSTEOPOROSIS
     Route: 049

REACTIONS (2)
  - CEREBROVASCULAR ACCIDENT [None]
  - PAIN [None]
